FAERS Safety Report 12601817 (Version 1)
Quarter: 2016Q3

REPORT INFORMATION
  Report Type: Spontaneous
  Country: US (occurrence: None)
  Receive Date: 20160727
  Receipt Date: 20160727
  Transmission Date: 20161109
  Serious: No
  Sender: FDA-Public Use
  Company Number: None

PATIENT
  Age: 75 Year
  Sex: Female
  Weight: 60.78 kg

DRUGS (4)
  1. ANUSOL HC SUPPOSITORY [Suspect]
     Active Substance: HYDROCORTISONE ACETATE
     Indication: HAEMORRHOIDS
     Dates: start: 20160514, end: 20160518
  2. MULTIVITAMINS [Concomitant]
     Active Substance: VITAMINS
  3. PROBIOTICS [Concomitant]
     Active Substance: PROBIOTICS NOS
  4. ASPIRIN. [Suspect]
     Active Substance: ASPIRIN

REACTIONS (2)
  - Herpes zoster [None]
  - Vaginal mucosal blistering [None]

NARRATIVE: CASE EVENT DATE: 20160514
